FAERS Safety Report 21021239 (Version 1)
Quarter: 2022Q2

REPORT INFORMATION
  Report Type: Spontaneous
  Country: US (occurrence: US)
  Receive Date: 20220629
  Receipt Date: 20220629
  Transmission Date: 20220721
  Serious: Yes (Death, Other)
  Sender: FDA-Public Use
  Company Number: US-AMGEN-USASP2022108788

PATIENT

DRUGS (12)
  1. FILGRASTIM [Suspect]
     Active Substance: FILGRASTIM
     Indication: Prophylaxis
     Dosage: 300 MICROGRAM/KILOGRAM
     Route: 065
  2. BLINATUMOMAB [Suspect]
     Active Substance: BLINATUMOMAB
     Indication: Acute lymphocytic leukaemia
     Dosage: UNK
     Route: 065
  3. IXAZOMIB CITRATE [Concomitant]
     Active Substance: IXAZOMIB CITRATE
  4. DASATINIB [Concomitant]
     Active Substance: DASATINIB
  5. PREDNISONE [Concomitant]
     Active Substance: PREDNISONE
  6. VINCRISTINE [Concomitant]
     Active Substance: VINCRISTINE
  7. DOXORUBICIN HYDROCHLORIDE [Concomitant]
     Active Substance: DOXORUBICIN HYDROCHLORIDE
  8. CYTARABINE [Concomitant]
     Active Substance: CYTARABINE
  9. METHOTREXATE SODIUM [Concomitant]
     Active Substance: METHOTREXATE SODIUM
  10. CYCLOPHOSPHAMIDE ANHYDROUS [Concomitant]
     Active Substance: CYCLOPHOSPHAMIDE ANHYDROUS
  11. HYDROCORTISONE ACETATE [Concomitant]
     Active Substance: HYDROCORTISONE ACETATE
  12. MERCAPTOPURINE [Concomitant]
     Active Substance: MERCAPTOPURINE

REACTIONS (2)
  - Death [Fatal]
  - Acute lymphocytic leukaemia recurrent [Unknown]
